FAERS Safety Report 4672587-5 (Version None)
Quarter: 2005Q2

REPORT INFORMATION
  Report Type: 
  Country: None (occurrence: None)
  Receive Date: 20050524
  Receipt Date: 20050407
  Transmission Date: 20051028
  Serious: Yes (Other)
  Sender: FDA-Public Use
  Company Number: AU-GLAXOSMITHKLINE-B0377981A

PATIENT
  Age: 62 Year
  Sex: Female
  Weight: 75 kg

DRUGS (4)
  1. QUILONUM SR [Suspect]
     Indication: DRUG USE FOR UNKNOWN INDICATION
     Dosage: 900MG AT NIGHT
     Route: 048
     Dates: start: 20040801
  2. TELMISARTAN [Concomitant]
     Route: 048
  3. THYROXINE [Concomitant]
     Route: 048
  4. OLANZAPINE [Concomitant]
     Route: 048

REACTIONS (3)
  - INSOMNIA [None]
  - THERAPEUTIC AGENT TOXICITY [None]
  - TREMOR [None]
